FAERS Safety Report 13076433 (Version 1)
Quarter: 2016Q4

REPORT INFORMATION
  Report Type: Spontaneous
  Country: CN (occurrence: CN)
  Receive Date: 20161230
  Receipt Date: 20161230
  Transmission Date: 20170207
  Serious: Yes (Hospitalization, Other)
  Sender: FDA-Public Use
  Company Number: CN-GILEAD-2016-0251335

PATIENT
  Age: 50 Year
  Sex: Male

DRUGS (1)
  1. ADEFOVIR DIPIVOXIL. [Suspect]
     Active Substance: ADEFOVIR DIPIVOXIL
     Indication: CHRONIC HEPATITIS B
     Dosage: 10 MG, QD
     Route: 065

REACTIONS (9)
  - Gait disturbance [Recovering/Resolving]
  - Fanconi syndrome acquired [Recovering/Resolving]
  - Hepatic cirrhosis [Recovering/Resolving]
  - Myelopathy [Recovering/Resolving]
  - Osteomalacia [Recovering/Resolving]
  - Arthralgia [Recovering/Resolving]
  - Haemorrhage [Recovering/Resolving]
  - Varicose vein ruptured [Recovering/Resolving]
  - Hypophosphataemia [Recovering/Resolving]
